FAERS Safety Report 5191344-7 (Version None)
Quarter: 2006Q4

REPORT INFORMATION
  Report Type: 
  Country: None (occurrence: None)
  Receive Date: 20061226
  Receipt Date: 20061221
  Transmission Date: 20070319
  Serious: Yes (Other)
  Sender: FDA-Public Use
  Company Number: FR-AVENTIS-200614521FR

PATIENT
  Sex: Female

DRUGS (1)
  1. TAXOTERE [Suspect]
     Indication: BREAST CANCER
     Route: 042
     Dates: start: 20061201, end: 20061201

REACTIONS (4)
  - DYSPHAGIA [None]
  - FACE OEDEMA [None]
  - PHARYNGEAL NEOPLASM [None]
  - VOCAL CORD PARALYSIS [None]
